FAERS Safety Report 8256047-0 (Version None)
Quarter: 2012Q2

REPORT INFORMATION
  Report Type: 
  Country: None (occurrence: None)
  Receive Date: 20120403
  Receipt Date: 20120323
  Transmission Date: 20120825
  Serious: Yes (Death, Hospitalization)
  Sender: FDA-Public Use
  Company Number: JP-ROCHE-1054174

PATIENT
  Sex: Male

DRUGS (3)
  1. CISPLATIN [Concomitant]
     Indication: METASTATIC GASTRIC CANCER
     Route: 041
     Dates: start: 20120220, end: 20120220
  2. HERCEPTIN [Suspect]
     Indication: METASTATIC GASTRIC CANCER
     Route: 041
     Dates: start: 20120220, end: 20120220
  3. XELODA [Suspect]
     Indication: METASTATIC GASTRIC CANCER
     Dosage: IT IS ONE ADMINISTERING WEEKLY HOLIDAY MEDICINE FOR TWO WEEKS.
     Route: 048
     Dates: start: 20120220, end: 20120227

REACTIONS (3)
  - CONVULSION [None]
  - ALTERED STATE OF CONSCIOUSNESS [None]
  - RESPIRATORY FAILURE [None]
